FAERS Safety Report 7718761-2 (Version None)
Quarter: 2011Q3

REPORT INFORMATION
  Report Type: 
  Country: None (occurrence: None)
  Receive Date: 20110830
  Receipt Date: 20110826
  Transmission Date: 20111222
  Serious: Yes (Other)
  Sender: FDA-Public Use
  Company Number: US-PFIZER INC-2011199492

PATIENT
  Sex: Female
  Weight: 88.435 kg

DRUGS (4)
  1. METOPROLOL [Concomitant]
     Indication: HYPERTENSION
     Dosage: 50 MG, DAILY
  2. METHYCLOTHIAZIDE [Concomitant]
     Dosage: 5 MG, DAILY
  3. ALAVERT [Suspect]
     Dosage: UNK
     Dates: start: 20110821, end: 20110821
  4. ALAVERT [Suspect]
     Indication: NASAL CONGESTION
     Dosage: UNK
     Dates: end: 20110101

REACTIONS (5)
  - RASH [None]
  - GASTRIC HAEMORRHAGE [None]
  - FLUSHING [None]
  - HYPERTHYROIDISM [None]
  - HYPERSENSITIVITY [None]
